FAERS Safety Report 10543749 (Version 1)
Quarter: 2014Q4

REPORT INFORMATION
  Report Type: Spontaneous
  Country: US (occurrence: US)
  Receive Date: 20141027
  Receipt Date: 20141027
  Transmission Date: 20150529
  Serious: Yes (Other)
  Sender: FDA-Public Use
  Company Number: US-BAYER-2014-154156

PATIENT
  Age: 85 Year
  Sex: Female
  Weight: 56 kg

DRUGS (2)
  1. ALEVE [Suspect]
     Active Substance: NAPROXEN SODIUM
     Indication: ARTHRITIS
     Dosage: 1 DF, BID
     Route: 048
     Dates: start: 20140901, end: 201410
  2. BAYER LOW DOSE [Interacting]
     Active Substance: ASPIRIN
     Indication: THROMBOSIS PROPHYLAXIS
     Dosage: 1 DF, QD
     Route: 048

REACTIONS (6)
  - Off label use [Unknown]
  - Rectal haemorrhage [Recovered/Resolved]
  - Intentional product misuse [Unknown]
  - Incorrect drug administration duration [Unknown]
  - Contusion [Recovered/Resolved]
  - Frequent bowel movements [Recovered/Resolved]

NARRATIVE: CASE EVENT DATE: 20140901
